FAERS Safety Report 12955930 (Version 1)
Quarter: 2016Q4

REPORT INFORMATION
  Report Type: Spontaneous
  Country: JP (occurrence: JP)
  Receive Date: 20161118
  Receipt Date: 20161118
  Transmission Date: 20170207
  Serious: Yes (Hospitalization, Other)
  Sender: FDA-Public Use
  Company Number: JP-GLAXOSMITHKLINE-JP2016JPN167707

PATIENT
  Age: 60 Year
  Sex: Female

DRUGS (1)
  1. LAMICTAL [Suspect]
     Active Substance: LAMOTRIGINE
     Indication: DEPRESSION
     Dosage: UNK
     Route: 048

REACTIONS (9)
  - Pyrexia [Recovered/Resolved]
  - Lip erosion [Recovered/Resolved]
  - Nikolsky^s sign [Recovered/Resolved]
  - Intermittent claudication [Not Recovered/Not Resolved]
  - Stevens-Johnson syndrome [Recovered/Resolved]
  - Skin erosion [Recovered/Resolved]
  - Conjunctival erosion [Recovered/Resolved]
  - Drug eruption [Recovered/Resolved]
  - Rash erythematous [Recovered/Resolved]
